FAERS Safety Report 13820086 (Version 1)
Quarter: 2017Q3

REPORT INFORMATION
  Report Type: Spontaneous
  Country: US (occurrence: US)
  Receive Date: 20170801
  Receipt Date: 20170801
  Transmission Date: 20171127
  Serious: Yes (Life-Threatening, Hospitalization, Other)
  Sender: FDA-Public Use
  Company Number: US-AUROBINDO-AUR-APL-2017-35602

PATIENT
  Age: 17 Year
  Sex: Male

DRUGS (5)
  1. ARIPIPRAZOLE. [Suspect]
     Active Substance: ARIPIPRAZOLE
     Indication: PRODUCT USED FOR UNKNOWN INDICATION
     Route: 065
  2. QUETIAPINE. [Suspect]
     Active Substance: QUETIAPINE
     Indication: PRODUCT USED FOR UNKNOWN INDICATION
     Route: 065
  3. CHLORPROMAZINE. [Suspect]
     Active Substance: CHLORPROMAZINE
     Indication: PRODUCT USED FOR UNKNOWN INDICATION
     Route: 065
  4. OLANZAPINE. [Suspect]
     Active Substance: OLANZAPINE
     Indication: PRODUCT USED FOR UNKNOWN INDICATION
     Route: 065
  5. RISPERIDONE. [Suspect]
     Active Substance: RISPERIDONE
     Indication: PRODUCT USED FOR UNKNOWN INDICATION
     Route: 065

REACTIONS (14)
  - Staring [Recovered/Resolved]
  - Hypophagia [Recovered/Resolved]
  - Agitation [Recovered/Resolved]
  - Drooling [Recovered/Resolved]
  - Urine output decreased [Recovered/Resolved]
  - Waxy flexibility [Recovered/Resolved]
  - Muscle rigidity [Recovered/Resolved]
  - Posturing [Recovered/Resolved]
  - Grimacing [Recovered/Resolved]
  - Aggression [Recovered/Resolved]
  - Catatonia [Recovered/Resolved]
  - Psychomotor retardation [Recovered/Resolved]
  - Neuroleptic malignant syndrome [Recovered/Resolved]
  - Negativism [Recovered/Resolved]
